FAERS Safety Report 6127519-X (Version None)
Quarter: 2009Q1

REPORT INFORMATION
  Report Type: 
  Country: None (occurrence: None)
  Receive Date: 20090319
  Receipt Date: 20090309
  Transmission Date: 20090719
  Serious: Yes (Hospitalization)
  Sender: FDA-Public Use
  Company Number: WAES 0902FRA00094

PATIENT
  Age: 70 Year
  Sex: Male

DRUGS (12)
  1. CAP VORINOSTAT [Suspect]
     Indication: NON-SMALL CELL LUNG CANCER
     Dosage: 400 MG/DAILY PO; 400 MG/DAILY PO
     Route: 048
     Dates: start: 20081215, end: 20081224
  2. CAP VORINOSTAT [Suspect]
     Indication: NON-SMALL CELL LUNG CANCER
     Dosage: 400 MG/DAILY PO; 400 MG/DAILY PO
     Route: 048
     Dates: start: 20090112, end: 20090121
  3. GEMCITABINE [Suspect]
     Indication: NON-SMALL CELL LUNG CANCER
     Dosage: 1250 MG/M2/D IV
     Route: 042
     Dates: start: 20081217, end: 20081217
  4. GEMCITABINE [Suspect]
     Indication: NON-SMALL CELL LUNG CANCER
     Dosage: 1250 MG/M2/D IV
     Route: 042
     Dates: start: 20081229, end: 20081229
  5. GEMCITABINE [Suspect]
     Indication: NON-SMALL CELL LUNG CANCER
     Dosage: 1250 MG/M2/D IV
     Route: 042
     Dates: start: 20090114, end: 20090114
  6. CISPLATIN [Suspect]
     Indication: NON-SMALL CELL LUNG CANCER
     Dosage: 75 MG/M2 D /DAILY IV
     Route: 042
     Dates: start: 20081217, end: 20081217
  7. CISPLATIN [Suspect]
     Indication: NON-SMALL CELL LUNG CANCER
     Dosage: 75 MG/M2 D /DAILY IV
     Route: 042
     Dates: start: 20090114, end: 20090114
  8. BUDESONIDE [Concomitant]
  9. CODEINE SUL TAB [Concomitant]
  10. FENOFIBRATE [Concomitant]
  11. OMEPRAZOLE [Concomitant]
  12. PEMETREXED DISODIUM [Concomitant]

REACTIONS (4)
  - GENERAL PHYSICAL HEALTH DETERIORATION [None]
  - HAEMOGLOBIN DECREASED [None]
  - HAEMOPTYSIS [None]
  - THROMBOCYTOPENIA [None]
